FAERS Safety Report 8367563-5 (Version None)
Quarter: 2012Q2

REPORT INFORMATION
  Report Type: 
  Country: None (occurrence: None)
  Receive Date: 20120517
  Receipt Date: 20120511
  Transmission Date: 20120825
  Serious: Yes (Hospitalization, Congenital Anomaly)
  Sender: FDA-Public Use
  Company Number: US-TEVA-294882USA

PATIENT
  Sex: Female

DRUGS (1)
  1. COPAXONE [Suspect]
     Route: 065

REACTIONS (6)
  - TRISOMY 21 [None]
  - HYPOVITAMINOSIS [None]
  - GASTROOESOPHAGEAL REFLUX DISEASE [None]
  - CONVULSION [None]
  - CONGENITAL MEGACOLON [None]
  - BACTERIAL INFECTION [None]
